FAERS Safety Report 24968543 (Version 1)
Quarter: 2025Q1

REPORT INFORMATION
  Report Type: Report from Study
  Country: CA (occurrence: CA)
  Receive Date: 20250214
  Receipt Date: 20250214
  Transmission Date: 20250408
  Serious: Yes (Other)
  Sender: JOHNSON AND JOHNSON
  Company Number: CA-JNJFOC-20250179600

PATIENT
  Sex: Female
  Weight: 79.6 kg

DRUGS (1)
  1. REMICADE [Suspect]
     Active Substance: INFLIXIMAB
     Indication: Rheumatoid arthritis
     Route: 041
     Dates: start: 20250207

REACTIONS (3)
  - Atypical pneumonia [Recovering/Resolving]
  - Nasopharyngitis [Unknown]
  - Product dose omission issue [Unknown]
